FAERS Safety Report 8076256-3 (Version None)
Quarter: 2012Q1

REPORT INFORMATION
  Report Type: 
  Country: None (occurrence: None)
  Receive Date: 20120127
  Receipt Date: 20120124
  Transmission Date: 20120608
  Serious: Yes (Life-Threatening, Hospitalization, Disabling, Other)
  Sender: FDA-Public Use
  Company Number: US-ROCHE-1010902

PATIENT
  Sex: Female
  Weight: 77.7 kg

DRUGS (2)
  1. XELODA [Suspect]
     Indication: BILE DUCT CANCER
     Dosage: 500 MG FOUR TABLETS
     Route: 048
     Dates: start: 20110922, end: 20111005
  2. XELODA [Suspect]
     Route: 048
     Dates: start: 20111012, end: 20111026

REACTIONS (5)
  - NAUSEA [None]
  - VOMITING [None]
  - DEEP VEIN THROMBOSIS [None]
  - RENAL FAILURE CHRONIC [None]
  - DIARRHOEA [None]
